FAERS Safety Report 17689151 (Version 1)
Quarter: 2020Q2

REPORT INFORMATION
  Report Type: Spontaneous
  Country: US (occurrence: US)
  Receive Date: 20200421
  Receipt Date: 20200421
  Transmission Date: 20200714
  Serious: No
  Sender: FDA-Public Use
  Company Number: US-TEVA-2020-US-1223435

PATIENT
  Age: 24 Year
  Sex: Male

DRUGS (1)
  1. TEVA CLONAZEPAM [Suspect]
     Active Substance: CLONAZEPAM
     Indication: SEIZURE
     Dosage: .5 MILLIGRAM DAILY; BEDTIME
     Route: 065
     Dates: start: 202001

REACTIONS (6)
  - Mental disorder [Unknown]
  - Drug ineffective [Unknown]
  - Decreased appetite [Unknown]
  - Lethargy [Unknown]
  - Product substitution issue [Unknown]
  - Fatigue [Unknown]
